FAERS Safety Report 9227428 (Version 1)
Quarter: 2013Q2

REPORT INFORMATION
  Report Type: Spontaneous
  Country: CA (occurrence: CA)
  Receive Date: 20130412
  Receipt Date: 20130412
  Transmission Date: 20140414
  Serious: Yes (Other)
  Sender: FDA-Public Use
  Company Number: CA-JNJFOC-20130404325

PATIENT
  Sex: 0

DRUGS (1)
  1. LISTERINE UNSPECIFIED [Suspect]
     Indication: FEELING DRUNK
     Route: 048

REACTIONS (2)
  - Intentional drug misuse [Unknown]
  - Incorrect route of drug administration [Unknown]
